FAERS Safety Report 6566042-5 (Version None)
Quarter: 2010Q1

REPORT INFORMATION
  Report Type: 
  Country: None (occurrence: None)
  Receive Date: 20100202
  Receipt Date: 20100118
  Transmission Date: 20100710
  Serious: No
  Sender: FDA-Public Use
  Company Number: SE-DENTSPLY-2010-0010-EUR

PATIENT
  Age: 68 Year
  Sex: Female

DRUGS (1)
  1. CITANEST [Suspect]

REACTIONS (2)
  - ANGIOEDEMA [None]
  - EYELID OEDEMA [None]
